FAERS Safety Report 5447724-5 (Version None)
Quarter: 2007Q3

REPORT INFORMATION
  Report Type: 
  Country: None (occurrence: None)
  Receive Date: 20070910
  Receipt Date: 20070905
  Transmission Date: 20080115
  Serious: Yes (Other)
  Sender: FDA-Public Use
  Company Number: HQWYE017005SEP07

PATIENT
  Sex: Male

DRUGS (1)
  1. CORDARONE [Suspect]
     Indication: CARDIAC FAILURE
     Route: 041
     Dates: start: 20070316, end: 20070316

REACTIONS (1)
  - BACK PAIN [None]
